FAERS Safety Report 8581004-4 (Version None)
Quarter: 2012Q3

REPORT INFORMATION
  Report Type: 
  Country: None (occurrence: None)
  Receive Date: 20120809
  Receipt Date: 20120731
  Transmission Date: 20120928
  Serious: No
  Sender: FDA-Public Use
  Company Number: US-PFIZER INC-2012190432

PATIENT
  Age: 47 Year
  Sex: Male

DRUGS (1)
  1. EPIPEN [Suspect]
     Indication: HYPERSENSITIVITY
     Dosage: UNK

REACTIONS (2)
  - INJECTION SITE PAIN [None]
  - ACCIDENTAL EXPOSURE [None]
